FAERS Safety Report 15320539 (Version 2)
Quarter: 2018Q3

REPORT INFORMATION
  Report Type: Spontaneous
  Country: US (occurrence: US)
  Receive Date: 20180827
  Receipt Date: 20180907
  Transmission Date: 20181010
  Serious: Yes (Hospitalization, Other)
  Sender: FDA-Public Use
  Company Number: US-AUROBINDO-AUR-APL-2018-042442

PATIENT
  Age: 72 Year
  Sex: Female

DRUGS (1)
  1. CINACALCET HYDROCHLORIDE. [Suspect]
     Active Substance: CINACALCET HYDROCHLORIDE
     Indication: PRODUCT USED FOR UNKNOWN INDICATION
     Dosage: 30 MILLIGRAM, TWO TIMES A DAY
     Route: 048

REACTIONS (9)
  - Dehydration [Recovered/Resolved]
  - Hypercalcaemia [Recovered/Resolved]
  - Nausea [Unknown]
  - Polydipsia [Unknown]
  - Polyuria [Unknown]
  - Constipation [Unknown]
  - Drug withdrawal syndrome [Unknown]
  - Hyperparathyroidism [Recovered/Resolved]
  - Mental status changes [Unknown]
